FAERS Safety Report 20432298 (Version 1)
Quarter: 2022Q1

REPORT INFORMATION
  Report Type: Spontaneous
  Country: IN (occurrence: IN)
  Receive Date: 20220204
  Receipt Date: 20220204
  Transmission Date: 20220423
  Serious: Yes (Death)
  Sender: FDA-Public Use
  Company Number: IN-PFIZER INC-2018356477

PATIENT
  Age: 62 Year
  Sex: Male
  Weight: 71.8 kg

DRUGS (5)
  1. SUTENT [Suspect]
     Active Substance: SUNITINIB MALATE
     Indication: Metastatic renal cell carcinoma
     Dosage: 50 MG, CYCLIC (ONCE A DAY 14 DAYS ON THEN 1 WEEK OFF)
     Route: 048
     Dates: start: 20180816
  2. MEGESTROL ACETATE [Concomitant]
     Active Substance: MEGESTROL ACETATE
     Dosage: 160 MG, DAILY
  3. BECOSULES Z [Concomitant]
     Dosage: 1 DF, DAILY
  4. OROFER-XT [FERROUS ASCORBATE;FOLIC ACID] [Concomitant]
     Dosage: 1 DF, DAILY
  5. FEBUXOSTAT [Concomitant]
     Active Substance: FEBUXOSTAT
     Dosage: 40 MG, DAILY

REACTIONS (5)
  - Death [Fatal]
  - Palmar-plantar erythrodysaesthesia syndrome [Unknown]
  - Pain [Unknown]
  - Constipation [Unknown]
  - Vomiting [Unknown]

NARRATIVE: CASE EVENT DATE: 20200828
